FAERS Safety Report 5274380-1 (Version None)
Quarter: 2007Q1

REPORT INFORMATION
  Report Type: 
  Country: None (occurrence: None)
  Receive Date: 20070323
  Receipt Date: 20070312
  Transmission Date: 20070707
  Serious: Yes (Hospitalization, Other)
  Sender: FDA-Public Use
  Company Number: US-PFIZER INC-2006136237

PATIENT
  Sex: Female
  Weight: 127 kg

DRUGS (3)
  1. BEXTRA [Suspect]
     Indication: BACK PAIN
     Route: 048
     Dates: start: 20030320, end: 20041130
  2. BEXTRA [Suspect]
     Indication: ARTHRALGIA
  3. BEXTRA [Suspect]
     Indication: ARTHRITIS

REACTIONS (2)
  - DEEP VEIN THROMBOSIS [None]
  - PULMONARY EMBOLISM [None]
